FAERS Safety Report 7379672-8 (Version None)
Quarter: 2011Q1

REPORT INFORMATION
  Report Type: 
  Country: None (occurrence: None)
  Receive Date: 20110329
  Receipt Date: 20110325
  Transmission Date: 20110831
  Serious: No
  Sender: FDA-Public Use
  Company Number: US-PFIZER INC-2011067389

PATIENT
  Sex: Female
  Weight: 68.027 kg

DRUGS (5)
  1. ADVIL LIQUI-GELS [Suspect]
     Indication: CONTUSION
     Dosage: 200 MG, 4X/DAY
     Route: 048
     Dates: start: 20110320, end: 20110324
  2. ADVIL LIQUI-GELS [Suspect]
     Indication: PAIN
  3. NAPROXEN [Concomitant]
     Indication: INFLAMMATION
  4. NAPROXEN [Concomitant]
     Indication: ARTHROPATHY
     Dosage: 1000 MG, DAILY
  5. BENADRYL [Concomitant]
     Dosage: UNK

REACTIONS (3)
  - INFLAMMATION [None]
  - ERYTHEMA [None]
  - SKIN EXFOLIATION [None]
